FAERS Safety Report 4437718-0 (Version None)
Quarter: 2004Q3

REPORT INFORMATION
  Report Type: 
  Country: None (occurrence: None)
  Receive Date: 20040831
  Receipt Date: 20040504
  Transmission Date: 20050211
  Serious: No
  Sender: FDA-Public Use
  Company Number: 16793

PATIENT
  Age: 48 Year
  Sex: Male

DRUGS (3)
  1. ZOVIRAX [Suspect]
     Dosage: 1APP THREE TIMES PER DAY
     Route: 061
  2. MULTIPLE MEDS [Concomitant]
  3. BACTROBAN [Concomitant]
     Route: 061

REACTIONS (5)
  - BLISTER [None]
  - BURNING SENSATION [None]
  - PHARMACEUTICAL PRODUCT COMPLAINT [None]
  - SKIN WARM [None]
  - SLEEP DISORDER [None]
